FAERS Safety Report 11976680 (Version 3)
Quarter: 2016Q1

REPORT INFORMATION
  Report Type: Spontaneous
  Country: FR (occurrence: FR)
  Receive Date: 20160129
  Receipt Date: 20160324
  Transmission Date: 20160526
  Serious: Yes (Hospitalization, Other)
  Sender: FDA-Public Use
  Company Number: FR-009507513-1601FRA010797

PATIENT
  Age: 81 Year
  Sex: Female
  Weight: 45 kg

DRUGS (16)
  1. KEYTRUDA [Suspect]
     Active Substance: PEMBROLIZUMAB
     Indication: METASTATIC MALIGNANT MELANOMA
     Dosage: 2 MG/KG, EVERY 3 WEEKS
     Route: 042
     Dates: start: 20150605, end: 20151030
  2. DOLIPRANE [Concomitant]
     Active Substance: ACETAMINOPHEN
  3. MOTILIUM [Concomitant]
     Active Substance: DOMPERIDONE
  4. DUPHALAC [Concomitant]
     Active Substance: LACTULOSE
  5. IBUPROFEN. [Concomitant]
     Active Substance: IBUPROFEN
  6. NEBIVOLOL. [Concomitant]
     Active Substance: NEBIVOLOL
  7. ZELITREX [Concomitant]
     Active Substance: VALACYCLOVIR HYDROCHLORIDE
  8. OESCLIM [Concomitant]
     Active Substance: ESTRADIOL
  9. HYDROCORTISONE. [Concomitant]
     Active Substance: HYDROCORTISONE
     Dosage: 20 MG, QD
  10. OMEPRAZOLE. [Concomitant]
     Active Substance: OMEPRAZOLE
  11. LUTERAN [Concomitant]
     Active Substance: CHLORMADINONE ACETATE
  12. SIBELIUM [Concomitant]
     Active Substance: FLUNARIZINE
  13. SERC [Concomitant]
     Active Substance: BETAHISTINE HYDROCHLORIDE
  14. IMOVANE [Concomitant]
     Active Substance: ZOPICLONE
  15. CORTISONE [Concomitant]
     Active Substance: CORTISONE\HYDROCORTISONE
     Dosage: 5 MG, QD
  16. OSTRAM VITAMIN D3 [Concomitant]

REACTIONS (1)
  - Meningitis aseptic [Recovered/Resolved]

NARRATIVE: CASE EVENT DATE: 20151203
